FAERS Safety Report 18040371 (Version 2)
Quarter: 2020Q3

REPORT INFORMATION
  Report Type: Spontaneous
  Country: AT (occurrence: AT)
  Receive Date: 20200717
  Receipt Date: 20200814
  Transmission Date: 20201103
  Serious: Yes (Other)
  Sender: FDA-Public Use
  Company Number: AT-BAUSCH-BL-2020-019794

PATIENT
  Age: 78 Year
  Sex: Female

DRUGS (26)
  1. DIAZEPAM. [Suspect]
     Active Substance: DIAZEPAM
     Indication: AGITATION
  2. SERTRALINE [Suspect]
     Active Substance: SERTRALINE HYDROCHLORIDE
     Indication: DEPRESSION
     Route: 065
     Dates: start: 200808, end: 2009
  3. SERTRALINE [Suspect]
     Active Substance: SERTRALINE HYDROCHLORIDE
     Route: 065
     Dates: start: 2009, end: 2010
  4. SERTRALINE [Suspect]
     Active Substance: SERTRALINE HYDROCHLORIDE
     Route: 065
     Dates: start: 2010, end: 2011
  5. SERTRALINE [Suspect]
     Active Substance: SERTRALINE HYDROCHLORIDE
     Route: 065
     Dates: start: 2012
  6. QUETIAPINE. [Suspect]
     Active Substance: QUETIAPINE
     Indication: BEHAVIOUR DISORDER
  7. DONEPEZIL. [Suspect]
     Active Substance: DONEPEZIL
     Indication: DEMENTIA ALZHEIMER^S TYPE
     Route: 065
     Dates: start: 200808, end: 2008
  8. ENALAPRIL [Concomitant]
     Active Substance: ENALAPRIL
     Indication: HYPERTENSION
  9. DIAZEPAM. [Suspect]
     Active Substance: DIAZEPAM
     Indication: DEMENTIA ALZHEIMER^S TYPE
     Dosage: INCREASED
     Route: 065
     Dates: start: 2017, end: 2018
  10. QUETIAPINE. [Suspect]
     Active Substance: QUETIAPINE
     Indication: AGITATION
     Route: 065
     Dates: start: 201601, end: 2018
  11. RISPERIDONE. [Suspect]
     Active Substance: RISPERIDONE
     Indication: NEUROPSYCHIATRIC SYMPTOMS
     Route: 065
     Dates: start: 200808, end: 2009
  12. RISPERIDONE. [Suspect]
     Active Substance: RISPERIDONE
     Indication: DEMENTIA ALZHEIMER^S TYPE
     Route: 065
     Dates: start: 2009, end: 2012
  13. METFORMIN [Concomitant]
     Active Substance: METFORMIN HYDROCHLORIDE
     Indication: TYPE 2 DIABETES MELLITUS
  14. SERTRALINE [Suspect]
     Active Substance: SERTRALINE HYDROCHLORIDE
     Route: 065
     Dates: start: 2011, end: 2012
  15. MEMANTINE. [Suspect]
     Active Substance: MEMANTINE
     Dosage: REDUCED
     Route: 065
     Dates: start: 2017, end: 2018
  16. DONEPEZIL. [Suspect]
     Active Substance: DONEPEZIL
     Dosage: FROM WEEK 4
     Route: 065
     Dates: start: 2008
  17. MEMANTINE. [Suspect]
     Active Substance: MEMANTINE
     Route: 065
     Dates: start: 2010, end: 2016
  18. MEMANTINE. [Suspect]
     Active Substance: MEMANTINE
     Dosage: REDUCED
     Route: 065
     Dates: start: 2018, end: 2019
  19. MEMANTINE. [Suspect]
     Active Substance: MEMANTINE
     Indication: DEMENTIA ALZHEIMER^S TYPE
     Dosage: TITRATED TO 20 MG/DAY WITHIN 4 WEEKS
     Route: 065
     Dates: start: 201002, end: 2010
  20. RISPERIDONE. [Suspect]
     Active Substance: RISPERIDONE
     Route: 065
     Dates: start: 2012, end: 2013
  21. RISPERIDONE. [Suspect]
     Active Substance: RISPERIDONE
     Route: 065
     Dates: start: 2015, end: 2016
  22. RISPERIDONE. [Suspect]
     Active Substance: RISPERIDONE
     Route: 065
     Dates: start: 2016, end: 2018
  23. DIAZEPAM. [Suspect]
     Active Substance: DIAZEPAM
     Indication: ANXIETY
     Route: 065
     Dates: start: 201601, end: 2017
  24. RISPERIDONE. [Suspect]
     Active Substance: RISPERIDONE
     Route: 065
     Dates: start: 2013, end: 2015
  25. RISPERIDONE. [Suspect]
     Active Substance: RISPERIDONE
     Route: 065
     Dates: start: 2018, end: 2019
  26. VITAMIN D3 [Concomitant]
     Active Substance: CHOLECALCIFEROL
     Indication: OSTEOPOROSIS PROPHYLAXIS
     Dosage: 15 DROPS/WEEK
     Route: 048

REACTIONS (5)
  - Sedation [Recovering/Resolving]
  - Lack of spontaneous speech [Not Recovered/Not Resolved]
  - Emotional poverty [Recovering/Resolving]
  - Immobile [Not Recovered/Not Resolved]
  - Cognitive disorder [Unknown]

NARRATIVE: CASE EVENT DATE: 2017
